FAERS Safety Report 23130519 (Version 1)
Quarter: 2023Q4

REPORT INFORMATION
  Report Type: Spontaneous
  Country: US (occurrence: None)
  Receive Date: 20231030
  Receipt Date: 20231030
  Transmission Date: 20240109
  Serious: Yes (Other)
  Sender: FDA-Public Use
  Company Number: None

PATIENT
  Age: 56 Year
  Sex: Female
  Weight: 65.7 kg

DRUGS (1)
  1. CVS LUBRICANT EYE DROPS [Suspect]
     Active Substance: CARBOXYMETHYLCELLULOSE SODIUM
     Indication: Dry eye
     Dates: start: 20230701, end: 20230929

REACTIONS (3)
  - Meibomian gland dysfunction [None]
  - Eyelid infection [None]
  - Visual impairment [None]

NARRATIVE: CASE EVENT DATE: 20230729
